FAERS Safety Report 9878267 (Version 2)
Quarter: 2014Q1

REPORT INFORMATION
  Report Type: Spontaneous
  Country: GB (occurrence: GB)
  Receive Date: 20140206
  Receipt Date: 20140225
  Transmission Date: 20141002
  Serious: Yes (Hospitalization, Other)
  Sender: FDA-Public Use
  Company Number: GB-JNJFOC-20140203330

PATIENT
  Sex: Female

DRUGS (11)
  1. XARELTO [Suspect]
     Indication: CEREBROVASCULAR ACCIDENT PROPHYLAXIS
     Route: 048
     Dates: start: 20130819
  2. XARELTO [Suspect]
     Indication: CEREBROVASCULAR ACCIDENT PROPHYLAXIS
     Route: 048
     Dates: start: 20131218
  3. XARELTO [Suspect]
     Indication: ATRIAL FIBRILLATION
     Route: 048
     Dates: start: 20130819
  4. XARELTO [Suspect]
     Indication: ATRIAL FIBRILLATION
     Route: 048
     Dates: start: 20131218
  5. FUROSEMIDE [Concomitant]
     Route: 065
     Dates: start: 20120802
  6. PERINDOPRIL ERBUMINE [Concomitant]
     Route: 065
     Dates: start: 20070625
  7. AMITRIPTYLINE  HYDROCHLORIDE [Concomitant]
     Route: 065
     Dates: start: 20060110
  8. GABAPENTIN [Concomitant]
     Route: 065
     Dates: start: 20070420
  9. PARACETAMOL [Concomitant]
     Route: 065
     Dates: start: 20080304
  10. FERROUS SULPHATE [Concomitant]
     Route: 065
     Dates: start: 20131218
  11. ATORVASTATIN [Concomitant]
     Indication: TRANSIENT ISCHAEMIC ATTACK
     Route: 065
     Dates: start: 20121101

REACTIONS (5)
  - Syncope [Unknown]
  - Anaemia [Recovering/Resolving]
  - Oesophageal ulcer [Unknown]
  - Oesophagitis [Unknown]
  - Diverticulum [Unknown]
